FAERS Safety Report 26015463 (Version 1)
Quarter: 2025Q4

REPORT INFORMATION
  Report Type: Spontaneous
  Country: US (occurrence: US)
  Receive Date: 20251109
  Receipt Date: 20251109
  Transmission Date: 20260117
  Serious: No
  Sender: Kenvue
  Company Number: US-KENVUE-20251006980

PATIENT
  Sex: Female
  Weight: 89.796 kg

DRUGS (13)
  1. TYLENOL [Suspect]
     Active Substance: ACETAMINOPHEN
     Indication: Arthralgia
     Dosage: UNK
     Route: 065
     Dates: start: 2025
  2. REMODULIN [Concomitant]
     Active Substance: TREPROSTINIL
     Indication: Pulmonary arterial hypertension
     Dosage: .004 MICROGRAM/KILOGRAM
     Route: 042
     Dates: start: 20250821
  3. REMODULIN [Concomitant]
     Active Substance: TREPROSTINIL
     Dosage: .006 MICROGRAM/KILOGRAM
     Route: 042
     Dates: start: 2025
  4. REMODULIN [Concomitant]
     Active Substance: TREPROSTINIL
     Dosage: .012 MICROGRAM/KILOGRAM
     Route: 042
     Dates: start: 2025
  5. REMODULIN [Concomitant]
     Active Substance: TREPROSTINIL
     Dosage: .018 MICROGRAM/KILOGRAM
     Route: 042
     Dates: start: 2025
  6. NEURONTIN [Concomitant]
     Active Substance: GABAPENTIN
     Indication: Headache
     Dosage: UNK
     Route: 065
     Dates: start: 2025
  7. FUROSEMIDE [Concomitant]
     Active Substance: FUROSEMIDE
     Indication: Product used for unknown indication
     Route: 065
  8. ACETAMINOPHEN [Concomitant]
     Active Substance: ACETAMINOPHEN
     Indication: Product used for unknown indication
     Route: 065
  9. SODIUM CHLORIDE [Concomitant]
     Active Substance: SODIUM CHLORIDE
     Indication: Product used for unknown indication
     Route: 065
  10. EXCEDRIN EXTRA STRENGTH [Concomitant]
     Active Substance: ACETAMINOPHEN\ASPIRIN\CAFFEINE
     Indication: Product used for unknown indication
     Route: 065
  11. NEXIUM [Concomitant]
     Active Substance: ESOMEPRAZOLE MAGNESIUM
     Indication: Product used for unknown indication
     Route: 065
  12. VITAMINS [Concomitant]
     Active Substance: VITAMINS
     Indication: Product used for unknown indication
     Route: 065
  13. OXYGEN [Concomitant]
     Active Substance: OXYGEN
     Indication: Product used for unknown indication
     Route: 065

REACTIONS (1)
  - Drug ineffective [Unknown]

NARRATIVE: CASE EVENT DATE: 20250101
